FAERS Safety Report 7223102-3 (Version None)
Quarter: 2011Q1

REPORT INFORMATION
  Report Type: 
  Country: None (occurrence: None)
  Receive Date: 20110112
  Receipt Date: 20100115
  Transmission Date: 20110831
  Serious: No
  Sender: FDA-Public Use
  Company Number: US-ALLERGAN-1000544US

PATIENT
  Sex: Female

DRUGS (7)
  1. NEXIUM [Concomitant]
  2. SUCRALFATE [Concomitant]
  3. FUROSEMIDE [Concomitant]
  4. CLONIDINE HCL [Concomitant]
  5. RESTASIS [Suspect]
     Indication: DRY EYE
     Dosage: UNK
     Route: 047
     Dates: start: 20091101
  6. LIPITOR [Concomitant]
  7. DIOVAN [Concomitant]

REACTIONS (2)
  - EYE IRRITATION [None]
  - EYELIDS PRURITUS [None]
